FAERS Safety Report 5725478-2 (Version None)
Quarter: 2008Q2

REPORT INFORMATION
  Report Type: 
  Country: None (occurrence: None)
  Receive Date: 20080501
  Receipt Date: 20080424
  Transmission Date: 20081010
  Serious: Yes (Hospitalization, Other)
  Sender: FDA-Public Use
  Company Number: GB-PFIZER INC-2008036693

PATIENT
  Age: 72 Year
  Sex: Male

DRUGS (1)
  1. DOXAZOSIN MESYLATE [Suspect]
     Indication: BENIGN PROSTATIC HYPERPLASIA
     Route: 048

REACTIONS (1)
  - FLOPPY IRIS SYNDROME [None]
